FAERS Safety Report 5060967-8 (Version None)
Quarter: 2006Q3

REPORT INFORMATION
  Report Type: 
  Country: None (occurrence: None)
  Receive Date: 20060720
  Receipt Date: 20060720
  Transmission Date: 20061208
  Serious: Yes (Other)
  Sender: FDA-Public Use
  Company Number: None

PATIENT
  Age: 2 Day
  Sex: Male
  Weight: 3.1752 kg

DRUGS (2)
  1. OPIUM TINCTURE USP DEODORIZED   10MG/ML   RANBAXY [Suspect]
     Indication: DRUG WITHDRAWAL SYNDROME NEONATAL
     Dosage: 0.2ML  ONCE  BUCCAL  INCREASE BY 0.05ML EVERY 3 HOURS TIL  BUCCAL (DURATION: ONE DOSE ONLY)
     Route: 002
     Dates: start: 20060714, end: 20060714
  2. OPIUM TINCTURE USP DEODORIZED   10MG/ML   RANBAXY [Suspect]
     Indication: TOBACCO WITHDRAWAL SYMPTOMS
     Dosage: 0.2ML  ONCE  BUCCAL  INCREASE BY 0.05ML EVERY 3 HOURS TIL  BUCCAL (DURATION: ONE DOSE ONLY)
     Route: 002
     Dates: start: 20060714, end: 20060714

REACTIONS (5)
  - DRUG ADMINISTRATION ERROR [None]
  - LETHARGY [None]
  - MEDICATION ERROR [None]
  - NEONATAL DISORDER [None]
  - OFF LABEL USE [None]
